FAERS Safety Report 9934431 (Version 2)
Quarter: 2014Q1

REPORT INFORMATION
  Report Type: Spontaneous
  Country: US (occurrence: US)
  Receive Date: 20140228
  Receipt Date: 20140228
  Transmission Date: 20141002
  Serious: Yes (Other)
  Sender: FDA-Public Use
  Company Number: US-ABBVIE-13P-163-1088369-00

PATIENT
  Age: 72 Year
  Sex: Female

DRUGS (2)
  1. VALPROIC ACID [Suspect]
     Indication: DEPRESSION
  2. VALPROIC ACID [Suspect]

REACTIONS (1)
  - Parkinsonism [Recovering/Resolving]
